FAERS Safety Report 9598499 (Version 1)
Quarter: 2013Q4

REPORT INFORMATION
  Report Type: Spontaneous
  Country: US (occurrence: US)
  Receive Date: 20131004
  Receipt Date: 20131004
  Transmission Date: 20140711
  Serious: No
  Sender: FDA-Public Use
  Company Number: US-AMGEN-USASP2013024062

PATIENT
  Age: 52 Year
  Sex: Female
  Weight: 129.2 kg

DRUGS (12)
  1. ENBREL [Suspect]
     Indication: PRODUCT USED FOR UNKNOWN INDICATION
     Dosage: 50 MG, QWK
     Route: 058
  2. HUMIRA [Concomitant]
     Indication: PSORIASIS
     Dosage: UNK
  3. DIOVAN [Concomitant]
     Dosage: 40 MG, UNK
  4. METFORMIN [Concomitant]
     Dosage: 500 MG, UNK
  5. ASACOL [Concomitant]
     Dosage: 400 MG, UNK
  6. GLIPIZIDE [Concomitant]
     Dosage: 5 MG, UNK
  7. VITAMIN D                          /00107901/ [Concomitant]
     Dosage: 2000 UNIT, UNK
  8. FISH OIL [Concomitant]
     Dosage: UNK
  9. MULTIVITAMINS, PLAIN [Concomitant]
     Dosage: UNK
  10. IMODIUM A-D [Concomitant]
     Dosage: 2 MG, UNK
  11. TYLENOL                            /00020001/ [Concomitant]
     Dosage: 325 MG, UNK
  12. BYETTA [Concomitant]
     Dosage: 10 MUG, UNK

REACTIONS (2)
  - Drug effect decreased [Unknown]
  - Colitis [Unknown]
